FAERS Safety Report 6077712-X (Version None)
Quarter: 2009Q1

REPORT INFORMATION
  Report Type: 
  Country: None (occurrence: None)
  Receive Date: 20090213
  Receipt Date: 20090211
  Transmission Date: 20090719
  Serious: Yes (Death)
  Sender: FDA-Public Use
  Company Number: US-ELI_LILLY_AND_COMPANY-US200811002863

PATIENT
  Age: 73 Year
  Sex: Female

DRUGS (1)
  1. XIGRIS [Suspect]
     Indication: UROSEPSIS
     Dates: start: 20081109

REACTIONS (2)
  - MULTI-ORGAN FAILURE [None]
  - SEPSIS [None]
